FAERS Safety Report 8759246 (Version 2)
Quarter: 2013Q1

REPORT INFORMATION
  Report Type: Spontaneous
  Country: JP (occurrence: JP)
  Receive Date: 20120829
  Receipt Date: 20130117
  Transmission Date: 20140127
  Serious: Yes (Other)
  Sender: FDA-Public Use
  Company Number: JP-ASTRAZENECA-2012SE64702

PATIENT
  Age: 54 Year
  Sex: Female

DRUGS (15)
  1. MEROPEN [Suspect]
     Indication: FEBRILE NEUTROPENIA
     Route: 042
     Dates: start: 20120814, end: 20120816
  2. MEROPEN [Suspect]
     Indication: SEPSIS
     Route: 042
     Dates: start: 20120814, end: 20120816
  3. MEROPEN [Suspect]
     Indication: FEBRILE NEUTROPENIA
     Route: 042
     Dates: start: 20120817, end: 20120821
  4. MEROPEN [Suspect]
     Indication: SEPSIS
     Route: 042
     Dates: start: 20120817, end: 20120821
  5. MEROPEN [Suspect]
     Indication: FEBRILE NEUTROPENIA
     Route: 042
     Dates: start: 20120821, end: 20120821
  6. MEROPEN [Suspect]
     Indication: SEPSIS
     Route: 042
     Dates: start: 20120821, end: 20120821
  7. MEROPEN [Suspect]
     Indication: FEBRILE NEUTROPENIA
     Route: 042
     Dates: start: 20120822, end: 20120822
  8. MEROPEN [Suspect]
     Indication: SEPSIS
     Route: 042
     Dates: start: 20120822, end: 20120822
  9. RECOMODULIN [Suspect]
     Dates: start: 20120817, end: 20120823
  10. AMIKACIN SULFATE [Suspect]
     Dates: start: 20120817, end: 20120908
  11. LASIX [Concomitant]
  12. INOVAN [Concomitant]
  13. NONTHRON [Concomitant]
  14. HANP [Concomitant]
  15. ALBUMIN [Concomitant]

REACTIONS (1)
  - Enterocolitis haemorrhagic [Recovered/Resolved]
